FAERS Safety Report 21841629 (Version 1)
Quarter: 2023Q1

REPORT INFORMATION
  Report Type: Spontaneous
  Country: FR (occurrence: FR)
  Receive Date: 20230110
  Receipt Date: 20230110
  Transmission Date: 20230417
  Serious: Yes (Hospitalization)
  Sender: FDA-Public Use
  Company Number: None

PATIENT
  Age: 80 Year
  Sex: Male

DRUGS (7)
  1. HYDROXYUREA [Suspect]
     Active Substance: HYDROXYUREA
     Indication: Polycythaemia vera
     Route: 048
     Dates: start: 202010
  2. PREDNISONE [Concomitant]
     Active Substance: PREDNISONE
     Dosage: DAILY DOSE: 2 MILLIGRAM
  3. Exforge 10/160 [Concomitant]
     Dosage: IN THE MORNING
  4. KARDEGIC [Concomitant]
     Active Substance: ASPIRIN DL-LYSINE
     Dosage: DAILY DOSE: 75 MILLIGRAM
  5. SIMVASTATIN [Concomitant]
     Active Substance: SIMVASTATIN
     Dosage: DAILY DOSE: 40 MILLIGRAM
  6. BETAXOLOL [Concomitant]
     Active Substance: BETAXOLOL
     Dosage: 5MG 2/D?DAILY DOSE: 10 MILLIGRAM
  7. LORAZEPAM [Concomitant]
     Active Substance: LORAZEPAM
     Dosage: AT BEDTIME

REACTIONS (2)
  - Respiratory failure [Not Recovered/Not Resolved]
  - Pyrexia [Not Recovered/Not Resolved]

NARRATIVE: CASE EVENT DATE: 20221020
